FAERS Safety Report 4675345-0 (Version None)
Quarter: 2005Q2

REPORT INFORMATION
  Report Type: 
  Country: None (occurrence: None)
  Receive Date: 20050527
  Receipt Date: 20050113
  Transmission Date: 20051028
  Serious: Yes (Hospitalization, Other)
  Sender: FDA-Public Use
  Company Number: US-BRISTOL-MYERS SQUIBB COMPANY-12825915

PATIENT
  Age: 57 Year
  Sex: Female

DRUGS (4)
  1. ABILIFY [Suspect]
     Indication: SCHIZOPHRENIA
     Dosage: DOSE LOWERED, PT RELAPSED
     Route: 048
     Dates: start: 20030131
  2. CLOZAPINE [Suspect]
     Indication: SCHIZOPHRENIA
     Route: 048
     Dates: start: 19990301
  3. NEURONTIN [Concomitant]
     Dates: start: 20020101
  4. ESKALITH [Concomitant]
     Dates: start: 20020101

REACTIONS (6)
  - DELUSION [None]
  - DIZZINESS [None]
  - FALL [None]
  - LOWER LIMB FRACTURE [None]
  - SCHIZOPHRENIA [None]
  - WHITE BLOOD CELL COUNT INCREASED [None]
